FAERS Safety Report 9787598 (Version 1)
Quarter: 2013Q4

REPORT INFORMATION
  Report Type: Spontaneous
  Country: IT (occurrence: IT)
  Receive Date: 20131230
  Receipt Date: 20131230
  Transmission Date: 20140711
  Serious: Yes (Other)
  Sender: FDA-Public Use
  Company Number: IT-TEVA-452723ISR

PATIENT
  Age: 86 Year
  Sex: Male

DRUGS (11)
  1. DICLOFENAC [Suspect]
     Indication: PAIN IN EXTREMITY
     Route: 048
     Dates: start: 20131101, end: 20131201
  2. DELTACORTENE [Interacting]
     Indication: CHRONIC OBSTRUCTIVE PULMONARY DISEASE
     Route: 048
     Dates: start: 20131101, end: 20131201
  3. CARDIRENE [Interacting]
     Indication: PROPHYLAXIS
     Route: 048
     Dates: start: 20090101, end: 20131201
  4. EUTIROX - 150 MICROGRAMMI COMPRESSE [Concomitant]
     Indication: PRODUCT USED FOR UNKNOWN INDICATION
     Route: 048
  5. MODURETIC - 5 MG + 50 MG COMPRESSE [Concomitant]
     Indication: PRODUCT USED FOR UNKNOWN INDICATION
     Dosage: 1 DOSAGE FORM = AMILORIDE HYDROCHLORIDE 5 MG + HYDROCHLOROTHIAZIDE 50 MG
  6. CONGESCOR 28 COMPRESSE DA 1.25 MG [Concomitant]
     Indication: PRODUCT USED FOR UNKNOWN INDICATION
  7. FORADIL - 12 MCG SOLUZIONE PRESSURIZZATA PER INALAZIONE [Concomitant]
     Indication: PRODUCT USED FOR UNKNOWN INDICATION
     Dosage: PRESSURISED INHALATION, SOLUTION
  8. VENTOLIN - 100 MCG SOSPENSIONE PRESSURIZZATA PER INALAZIONE [Concomitant]
     Indication: PRODUCT USED FOR UNKNOWN INDICATION
     Dosage: PRESSURISED INHALATION, SUSPENSION
  9. XANAX - 0,5 MG COMPRESSE A RILASCIO PROLUNGATO [Concomitant]
     Indication: PRODUCT USED FOR UNKNOWN INDICATION
  10. FLIXOTIDE - 50 MCG SOSPENSIONE PRESSURIZZATA PER INALAZIONE [Concomitant]
     Indication: PRODUCT USED FOR UNKNOWN INDICATION
  11. LANSOPRAZOLE [Concomitant]
     Indication: PRODUCT USED FOR UNKNOWN INDICATION

REACTIONS (3)
  - Drug interaction [Recovering/Resolving]
  - Gastritis [Recovering/Resolving]
  - Melaena [Recovering/Resolving]
